FAERS Safety Report 5427036-6 (Version None)
Quarter: 2007Q3

REPORT INFORMATION
  Report Type: 
  Country: None (occurrence: None)
  Receive Date: 20070824
  Receipt Date: 20070824
  Transmission Date: 20080115
  Serious: Yes (Hospitalization, Other)
  Sender: FDA-Public Use
  Company Number: None

PATIENT
  Sex: Male

DRUGS (2)
  1. NIASPAN [Suspect]
     Dosage: 1500 MG 2 TABLETS ORAL
     Route: 048
     Dates: start: 20070730, end: 20070802
  2. NIASPAN [Suspect]
     Dosage: 1500 MG 3 TABLETS ORAL
     Route: 048
     Dates: start: 20070803, end: 20070805

REACTIONS (3)
  - DYSPNOEA [None]
  - PALPITATIONS [None]
  - WEIGHT INCREASED [None]
